FAERS Safety Report 26118356 (Version 1)
Quarter: 2025Q4

REPORT INFORMATION
  Report Type: Spontaneous
  Country: CN (occurrence: CN)
  Receive Date: 20251203
  Receipt Date: 20251203
  Transmission Date: 20260118
  Serious: Yes (Life-Threatening, Hospitalization, Other)
  Sender: PFIZER
  Company Number: CN-PFIZER INC-PV202500139498

PATIENT
  Age: 6 Year
  Sex: Male
  Weight: 16.4 kg

DRUGS (13)
  1. CYTARABINE [Suspect]
     Active Substance: CYTARABINE
     Indication: Acute leukaemia
     Dosage: 0.03 G, 1X/DAY
     Route: 037
     Dates: start: 20251107, end: 20251107
  2. CYTARABINE [Suspect]
     Active Substance: CYTARABINE
     Dosage: 0.03 G, 1X/DAY
     Route: 037
     Dates: start: 20251114
  3. CYTARABINE [Suspect]
     Active Substance: CYTARABINE
     Dosage: 0.03 G, 1X/DAY
     Route: 037
     Dates: start: 20251117
  4. METHOTREXATE SODIUM [Suspect]
     Active Substance: METHOTREXATE SODIUM
     Indication: Acute leukaemia
     Dosage: 12 MG, 1X/DAY
     Route: 037
     Dates: start: 20251107, end: 20251107
  5. METHOTREXATE SODIUM [Suspect]
     Active Substance: METHOTREXATE SODIUM
     Dosage: 12 MG, 1X/DAY
     Route: 037
     Dates: start: 20251114
  6. METHOTREXATE SODIUM [Suspect]
     Active Substance: METHOTREXATE SODIUM
     Dosage: 12 MG, 1X/DAY
     Route: 037
     Dates: start: 20251117
  7. PEGASPARGASE [Suspect]
     Active Substance: PEGASPARGASE
     Indication: Acute leukaemia
     Dosage: 2.2 ML, 1X/DAY
     Route: 030
     Dates: start: 20251111, end: 20251111
  8. DEXRAZOXANE [Suspect]
     Active Substance: DEXRAZOXANE
     Indication: Acute leukaemia
     Dosage: 250 MG, 1X/DAY
     Route: 041
     Dates: start: 20251110, end: 20251110
  9. DEXRAZOXANE [Suspect]
     Active Substance: DEXRAZOXANE
     Dosage: 250 MG, 1X/DAY
     Route: 041
     Dates: start: 20251117
  10. DAUNORUBICIN HYDROCHLORIDE [Suspect]
     Active Substance: DAUNORUBICIN HYDROCHLORIDE
     Indication: Acute leukaemia
     Dosage: 20 MG, 1X/DAY
     Route: 041
     Dates: start: 20251110, end: 20251110
  11. DAUNORUBICIN HYDROCHLORIDE [Suspect]
     Active Substance: DAUNORUBICIN HYDROCHLORIDE
     Dosage: 20 MG, 1X/DAY
     Route: 041
     Dates: start: 20251117
  12. VINCRISTINE SULFATE [Suspect]
     Active Substance: VINCRISTINE SULFATE
     Indication: Acute leukaemia
     Dosage: 1 MG, 1X/DAY
     Route: 042
     Dates: start: 20251110, end: 20251110
  13. VINCRISTINE SULFATE [Suspect]
     Active Substance: VINCRISTINE SULFATE
     Dosage: 1 MG, 1X/DAY
     Route: 042
     Dates: start: 20251117

REACTIONS (4)
  - Thrombocytopenia [Recovering/Resolving]
  - Neutrophil count decreased [Unknown]
  - White blood cell count decreased [Unknown]
  - Haemoglobin decreased [Unknown]

NARRATIVE: CASE EVENT DATE: 20251115
